FAERS Safety Report 22178937 (Version 5)
Quarter: 2023Q2

REPORT INFORMATION
  Report Type: Spontaneous
  Country: US (occurrence: US)
  Receive Date: 20230406
  Receipt Date: 20230609
  Transmission Date: 20230722
  Serious: No
  Sender: FDA-Public Use
  Company Number: US-SA-SAC20230405000415

PATIENT
  Age: 62 Year
  Sex: Female

DRUGS (1)
  1. DUPIXENT [Suspect]
     Active Substance: DUPILUMAB
     Indication: Nasal polyps
     Dosage: 300 MG FREQUENCY: OTHER
     Route: 058
     Dates: start: 202208

REACTIONS (7)
  - Ear inflammation [Unknown]
  - Hypoacusis [Not Recovered/Not Resolved]
  - Hypoaesthesia [Unknown]
  - Back pain [Unknown]
  - Vertigo [Unknown]
  - Pain in extremity [Unknown]
  - Arthralgia [Unknown]

NARRATIVE: CASE EVENT DATE: 20230301
